FAERS Safety Report 18513031 (Version 5)
Quarter: 2021Q1

REPORT INFORMATION
  Report Type: Spontaneous
  Country: US (occurrence: US)
  Receive Date: 20201117
  Receipt Date: 20210105
  Transmission Date: 20210419
  Serious: No
  Sender: FDA-Public Use
  Company Number: US-PFIZER INC-2020449677

PATIENT
  Age: 67 Year
  Sex: Female

DRUGS (4)
  1. INLYTA [Suspect]
     Active Substance: AXITINIB
     Dosage: 5 MG, DAILY
     Route: 048
     Dates: start: 20201109
  2. INLYTA [Suspect]
     Active Substance: AXITINIB
     Dosage: 5 MG
     Route: 048
     Dates: start: 20201110
  3. INLYTA [Suspect]
     Active Substance: AXITINIB
     Dosage: UNK
     Route: 048
     Dates: start: 20201108
  4. INLYTA [Suspect]
     Active Substance: AXITINIB
     Dosage: 5 MG
     Route: 048
     Dates: start: 20201104

REACTIONS (4)
  - Off label use [Unknown]
  - Abdominal pain [Recovering/Resolving]
  - Dysphonia [Recovering/Resolving]
  - Decreased appetite [Unknown]

NARRATIVE: CASE EVENT DATE: 2020
